FAERS Safety Report 9638708 (Version 1)
Quarter: 2013Q4

REPORT INFORMATION
  Report Type: Spontaneous
  Country: AU (occurrence: AU)
  Receive Date: 20131022
  Receipt Date: 20131022
  Transmission Date: 20140711
  Serious: Yes (Other)
  Sender: FDA-Public Use
  Company Number: CHPA2013AU015889

PATIENT
  Age: 66 Year
  Sex: Female

DRUGS (4)
  1. NICOTINELL TTS [Suspect]
     Indication: SMOKING CESSATION THERAPY
     Dosage: 21 MG, QD
     Route: 062
     Dates: end: 20131015
  2. NEXIUM//ESOMEPRAZOLE SODIUM [Concomitant]
     Indication: DYSPEPSIA
     Dosage: 20 MG, QD
     Route: 048
  3. NOTEN [Concomitant]
     Indication: BLOOD PRESSURE
     Dosage: 25 MG, QD
     Route: 048
  4. CARTIA//ACETYLSALICYLIC ACID [Concomitant]
     Dosage: 100 MG, TIW
     Route: 048

REACTIONS (1)
  - Myalgia [Recovering/Resolving]
